FAERS Safety Report 16774193 (Version 1)
Quarter: 2019Q3

REPORT INFORMATION
  Report Type: Spontaneous
  Country: US (occurrence: US)
  Receive Date: 20190905
  Receipt Date: 20190905
  Transmission Date: 20191005
  Serious: No
  Sender: FDA-Public Use
  Company Number: US-009507513-1909USA000060

PATIENT
  Age: 29 Year
  Sex: Female
  Weight: 113.38 kg

DRUGS (2)
  1. NEXPLANON [Suspect]
     Active Substance: ETONOGESTREL
     Dosage: ROD, 68 MILLIGRAM, ARM
     Dates: start: 20190827, end: 20190827
  2. NEXPLANON [Suspect]
     Active Substance: ETONOGESTREL
     Dosage: UNIT, 68 MILLIGRAM, ARM
     Route: 059
     Dates: start: 20190827

REACTIONS (4)
  - Device expulsion [Recovered/Resolved]
  - Complication of device insertion [Recovered/Resolved]
  - Device difficult to use [Recovered/Resolved]
  - Device use error [Unknown]

NARRATIVE: CASE EVENT DATE: 20190827
